FAERS Safety Report 7754501-9 (Version None)
Quarter: 2011Q3

REPORT INFORMATION
  Report Type: 
  Country: None (occurrence: None)
  Receive Date: 20110915
  Receipt Date: 20110907
  Transmission Date: 20111222
  Serious: Yes (Death, Hospitalization, Disabling, Other)
  Sender: FDA-Public Use
  Company Number: US-CELGENEUS-163-21880-11040279

PATIENT
  Sex: Male
  Weight: 97.7 kg

DRUGS (25)
  1. DEXAMETHASONE [Concomitant]
     Dosage: 40 MILLIGRAM
     Route: 065
  2. MELATONIN [Concomitant]
     Dosage: 3 MILLIGRAM
     Route: 065
  3. AMLODIPINE [Concomitant]
     Dosage: 5 MILLIGRAM
     Route: 065
  4. FLONASE [Concomitant]
     Route: 045
  5. POTASSIUM [Concomitant]
     Dosage: 40 MILLIEQUIVALENTS
     Route: 065
  6. OMEPRAZOLE [Concomitant]
     Dosage: 20 MILLIGRAM
     Route: 065
  7. LOVAZA [Concomitant]
     Dosage: 1 CAPSULE
     Route: 048
  8. CALCIUM PLUS VITAMIN D [Concomitant]
     Dosage: 500/200
     Route: 048
  9. HYDROCHLOROTHIAZIDE [Concomitant]
     Indication: HYPERTENSION
     Dosage: 25 MILLIGRAM
     Route: 065
  10. MULTI-VITAMINS [Concomitant]
     Route: 048
  11. METOPROLOL TARTRATE [Concomitant]
     Indication: HYPERTENSION
     Route: 065
  12. FLOMAX [Concomitant]
     Dosage: .4 MILLIGRAM
     Route: 065
  13. RED YEAST RICE [Concomitant]
     Dosage: 24 MILLIGRAM
     Route: 065
  14. PLAVIX [Concomitant]
     Dosage: 75 MILLIGRAM
     Route: 065
  15. MUCOMYST [Concomitant]
     Indication: PREMEDICATION
     Route: 065
     Dates: start: 20110301
  16. RED BLOOD CELLS [Concomitant]
     Dosage: 2 UNITS
     Route: 041
     Dates: start: 20110301, end: 20110301
  17. METRONIDAZOLE [Concomitant]
     Route: 065
     Dates: start: 20110301
  18. BICARBONATE [Concomitant]
     Indication: PREMEDICATION
     Route: 065
     Dates: start: 20110301
  19. REVLIMID [Suspect]
     Indication: MULTIPLE MYELOMA
     Dosage: 15 MILLIGRAM
     Route: 048
     Dates: start: 20110221, end: 20110311
  20. REVLIMID [Suspect]
     Dosage: 10 MILLIGRAM
     Route: 048
     Dates: start: 20110301, end: 20110421
  21. ASPIRIN [Concomitant]
     Dosage: 325 MILLIGRAM
     Route: 065
  22. ASPIRIN [Concomitant]
     Dosage: 81 MILLIGRAM
     Route: 065
  23. SENOKOT [Concomitant]
     Dosage: 1-2 TABLETS
     Route: 048
  24. LIPITOR [Concomitant]
     Dosage: 10 MILLIGRAM
     Route: 065
     Dates: start: 20110301
  25. TAMIFLU [Concomitant]
     Indication: INFLUENZA
     Route: 065
     Dates: start: 20110301

REACTIONS (30)
  - ELECTROCARDIOGRAM QT PROLONGED [None]
  - COUGH [None]
  - PROTEIN URINE PRESENT [None]
  - CLOSTRIDIUM TEST POSITIVE [None]
  - INFLUENZA [None]
  - LOSS OF CONSCIOUSNESS [None]
  - UPPER RESPIRATORY TRACT INFECTION [None]
  - NASAL CONGESTION [None]
  - NEUTROPENIA [None]
  - EMBOLIC CEREBRAL INFARCTION [None]
  - DYSARTHRIA [None]
  - CEREBROVASCULAR ACCIDENT [None]
  - ASPARTATE AMINOTRANSFERASE INCREASED [None]
  - PRESYNCOPE [None]
  - PANCYTOPENIA [None]
  - HYPERHIDROSIS [None]
  - ALANINE AMINOTRANSFERASE INCREASED [None]
  - NEUTROPHIL COUNT DECREASED [None]
  - PLATELET COUNT DECREASED [None]
  - BUNDLE BRANCH BLOCK RIGHT [None]
  - MITRAL VALVE INCOMPETENCE [None]
  - TRICUSPID VALVE INCOMPETENCE [None]
  - RHINORRHOEA [None]
  - DYSPNOEA EXERTIONAL [None]
  - BRAIN HERNIATION [None]
  - HAEMOGLOBIN DECREASED [None]
  - ASTHENIA [None]
  - FATIGUE [None]
  - ODYNOPHAGIA [None]
  - BLOOD ALKALINE PHOSPHATASE INCREASED [None]
